FAERS Safety Report 17964877 (Version 3)
Quarter: 2021Q2

REPORT INFORMATION
  Report Type: Report from Study
  Country: US (occurrence: US)
  Receive Date: 20200630
  Receipt Date: 20210420
  Transmission Date: 20210717
  Serious: Yes (Other)
  Sender: FDA-Public Use
  Company Number: US-GLAXOSMITHKLINE-US2020GSK113655

PATIENT
  Age: 27 Year
  Sex: Female
  Weight: 60 kg

DRUGS (3)
  1. BELIMUMAB [Suspect]
     Active Substance: BELIMUMAB
     Indication: SYSTEMIC LUPUS ERYTHEMATOSUS
     Dosage: 200 MG, WE
     Route: 058
     Dates: start: 20131121, end: 20140710
  2. BELIMUMAB [Suspect]
     Active Substance: BELIMUMAB
     Dosage: 10 MG/KG MONTHLY
     Route: 042
     Dates: start: 20140724, end: 20171228
  3. BELIMUMAB [Suspect]
     Active Substance: BELIMUMAB
     Dosage: 200 MG, WEEKLY
     Route: 058
     Dates: start: 20180205

REACTIONS (1)
  - Depression suicidal [Recovered/Resolved]

NARRATIVE: CASE EVENT DATE: 20190215
